FAERS Safety Report 4835318-1 (Version None)
Quarter: 2005Q4

REPORT INFORMATION
  Report Type: 
  Country: None (occurrence: None)
  Receive Date: 20051114
  Receipt Date: 20051031
  Transmission Date: 20060501
  Serious: Yes (Death, Hospitalization)
  Sender: FDA-Public Use
  Company Number: US-2005-018925

PATIENT
  Age: 61 Year
  Sex: Male

DRUGS (7)
  1. BETASERON [Suspect]
     Indication: SECONDARY PROGRESSIVE MULTIPLE SCLEROSIS
     Dosage: 8 MIU, EVERY 2D, SUBCUTANEOUS
     Route: 058
     Dates: start: 20021030
  2. HUMULIN R [Concomitant]
  3. HUMULIN N [Concomitant]
  4. DILANTIN   /AUS/(PHENYTOIN SODIUM) [Concomitant]
  5. PROTONIX ^WYETH-AYERST^ (PANTOPRAZOLE SODIUM) [Concomitant]
  6. BACLOFEN [Concomitant]
  7. FLUOXETINE [Concomitant]

REACTIONS (5)
  - MULTI-ORGAN FAILURE [None]
  - PNEUMONIA [None]
  - RENAL FAILURE ACUTE [None]
  - RESPIRATORY FAILURE [None]
  - SEPSIS [None]
